FAERS Safety Report 8094190-X (Version None)
Quarter: 2012Q1

REPORT INFORMATION
  Report Type: 
  Country: None (occurrence: None)
  Receive Date: 20120130
  Receipt Date: 20120130
  Transmission Date: 20120608
  Serious: Yes (Other)
  Sender: FDA-Public Use
  Company Number: None

PATIENT
  Age: 64 Year
  Sex: Female
  Weight: 90.718 kg

DRUGS (1)
  1. LETROZOLE [Suspect]
     Indication: NEOPLASM MALIGNANT
     Dosage: ONE PILL
     Route: 048
     Dates: start: 20110601, end: 20111001

REACTIONS (5)
  - DEPRESSION [None]
  - FATIGUE [None]
  - ARTHRALGIA [None]
  - PRODUCT SUBSTITUTION ISSUE [None]
  - ARTERIAL DISORDER [None]
